FAERS Safety Report 16633279 (Version 2)
Quarter: 2020Q3

REPORT INFORMATION
  Report Type: Spontaneous
  Country: US (occurrence: US)
  Receive Date: 20190725
  Receipt Date: 20200805
  Transmission Date: 20201102
  Serious: No
  Sender: FDA-Public Use
  Company Number: US-TARO-2019TAR00442

PATIENT
  Sex: Male

DRUGS (1)
  1. FLUOCINONIDE CREAM USP 0.05%. [Suspect]
     Active Substance: FLUOCINONIDE
     Indication: SKIN DISORDER
     Dosage: UNK
     Route: 061
     Dates: end: 201903

REACTIONS (4)
  - Skin disorder [Recovering/Resolving]
  - Drug ineffective [Recovered/Resolved]
  - Application site pain [Recovering/Resolving]
  - Application site inflammation [Recovering/Resolving]
